FAERS Safety Report 23215817 (Version 2)
Quarter: 2024Q1

REPORT INFORMATION
  Report Type: Spontaneous
  Country: US (occurrence: US)
  Receive Date: 20231122
  Receipt Date: 20240103
  Transmission Date: 20240410
  Serious: No
  Sender: FDA-Public Use
  Company Number: US-BRISTOL-MYERS SQUIBB COMPANY-2023-167638

PATIENT
  Age: 82 Year
  Sex: Female

DRUGS (43)
  1. REVLIMID [Suspect]
     Active Substance: LENALIDOMIDE
     Indication: Plasma cell myeloma
     Route: 048
     Dates: start: 20231109
  2. DEXAMETHASONE [Suspect]
     Active Substance: DEXAMETHASONE
     Indication: Product used for unknown indication
     Dosage: 20MG
     Dates: start: 20231122
  3. DEXAMETHASONE [Suspect]
     Active Substance: DEXAMETHASONE
     Dosage: 20MG
     Dates: start: 20231130
  4. DEXAMETHASONE [Suspect]
     Active Substance: DEXAMETHASONE
     Dosage: 20MG
     Dates: start: 20231207
  5. DEXAMETHASONE [Suspect]
     Active Substance: DEXAMETHASONE
     Dates: start: 20231116
  6. DARATUMUMAB\HYALURONIDASE-FIHJ [Suspect]
     Active Substance: DARATUMUMAB\HYALURONIDASE-FIHJ
     Indication: Product used for unknown indication
     Dosage: 1800-30000
     Dates: start: 20231109
  7. DARATUMUMAB\HYALURONIDASE-FIHJ [Suspect]
     Active Substance: DARATUMUMAB\HYALURONIDASE-FIHJ
     Dosage: 1800-30000
     Dates: start: 20231116
  8. DARATUMUMAB\HYALURONIDASE-FIHJ [Suspect]
     Active Substance: DARATUMUMAB\HYALURONIDASE-FIHJ
     Dosage: 1800-30000
     Dates: start: 20231122
  9. DARATUMUMAB\HYALURONIDASE-FIHJ [Suspect]
     Active Substance: DARATUMUMAB\HYALURONIDASE-FIHJ
     Dosage: 1800-30000
     Dates: start: 20231130
  10. DARATUMUMAB\HYALURONIDASE-FIHJ [Suspect]
     Active Substance: DARATUMUMAB\HYALURONIDASE-FIHJ
     Dosage: 1800-30000
     Dates: start: 20231207
  11. ZOLEDRONIC ACID [Suspect]
     Active Substance: ZOLEDRONIC ACID
     Indication: Product used for unknown indication
  12. TYLENOL [Concomitant]
     Active Substance: ACETAMINOPHEN
     Indication: Pain
     Dosage: 650MG
     Route: 048
     Dates: start: 20231116
  13. TYLENOL [Concomitant]
     Active Substance: ACETAMINOPHEN
     Dosage: 650MG
     Route: 048
     Dates: start: 20231122
  14. TYLENOL [Concomitant]
     Active Substance: ACETAMINOPHEN
     Dosage: FREQ: TAKE TWO TABLETS BY MOUTH EVERY 4 HOURS AS NEEDED
     Route: 048
  15. TYLENOL [Concomitant]
     Active Substance: ACETAMINOPHEN
     Dosage: 650MG
     Route: 048
     Dates: start: 20231109
  16. ZOVIRAX [Concomitant]
     Active Substance: ACYCLOVIR
     Indication: Product used for unknown indication
  17. PROVENTIL [Concomitant]
     Active Substance: ALBUTEROL
     Indication: Dyspnoea
     Dosage: 2.5MG/3ML FREQ: INHALE 3 ML SOLUTION BY NEBULIZER AS DIRECTED EVERY 8 HOURS AS NEEDED FOR WHEEZING O
  18. ASPIRIN [Concomitant]
     Active Substance: ASPIRIN
     Indication: Medical device implantation
     Route: 048
  19. CITRACAL + D3 [Concomitant]
     Indication: Product used for unknown indication
     Dosage: 315 MG-6.25 MCG (250 UNIT) TABLET
     Route: 048
  20. COREG [Concomitant]
     Active Substance: CARVEDILOL
     Indication: Medical device implantation
  21. VITAMIN D3 [Concomitant]
     Active Substance: CHOLECALCIFEROL
     Indication: Vitamin D deficiency
     Dosage: FREQ: TAKE ONE CAPSULE WEEKLY X 12 WEEKS, THEN START 2,000IU DAILY FOR MAINTENANCE.
  22. VITAMIN B12 [Concomitant]
     Active Substance: CYANOCOBALAMIN
     Indication: Product used for unknown indication
     Route: 048
  23. DICLOFENAC [Concomitant]
     Active Substance: DICLOFENAC
     Indication: Product used for unknown indication
     Dosage: APPLY TWO G TOPICALLY TO AFFECTED AREA FOUR TIMES DAILY AS NEEDED.
  24. VIBRAMYCIN [DOXYCYCLINE HYCLATE] [Concomitant]
     Indication: Product used for unknown indication
     Route: 048
  25. NEURONTIN [Concomitant]
     Active Substance: GABAPENTIN
     Indication: Neuralgia
     Route: 048
  26. HYDRODIURIL [Concomitant]
     Active Substance: HYDROCHLOROTHIAZIDE
     Indication: Product used for unknown indication
     Dosage: TAKE ONE TABLET BY MOUTH EVERY MORNING.
     Route: 048
  27. NORCO [Concomitant]
     Active Substance: ACETAMINOPHEN\HYDROCODONE BITARTRATE
     Indication: Pain
     Dosage: 5/325 MG TABLET.TAKE ONE TABLET TO TWO TABLETS BY MOUTH EVERY 6 HOURS AS NEEDED FOR PAIN.
     Route: 048
  28. CULTURELLE [Concomitant]
     Active Substance: LACTOBACILLUS RHAMNOSUS
     Indication: Product used for unknown indication
     Dosage: 15 BILLION CELL CAPSULE
     Route: 048
  29. CLARITIN [Concomitant]
     Active Substance: LORATADINE
     Indication: Product used for unknown indication
     Route: 048
  30. POTASSIUM CHLORIDE [Concomitant]
     Active Substance: POTASSIUM CHLORIDE
     Indication: Product used for unknown indication
     Dosage: TAKE ONE TABLET BY MOUTH DAILY. TAKE WITH A MEAL AND A FULL GLASS OF WATER.
     Route: 048
  31. ULTRAM [Concomitant]
     Active Substance: TRAMADOL HYDROCHLORIDE
     Indication: Pain
     Route: 048
  32. BENADRYL [Concomitant]
     Active Substance: DIPHENHYDRAMINE HYDROCHLORIDE
     Indication: Product used for unknown indication
     Dosage: 50 MG
     Dates: start: 20231116
  33. BENADRYL [Concomitant]
     Active Substance: DIPHENHYDRAMINE HYDROCHLORIDE
     Dosage: 50 MG
     Dates: start: 20231122
  34. BENADRYL [Concomitant]
     Active Substance: DIPHENHYDRAMINE HYDROCHLORIDE
     Dosage: 50 MG
     Dates: start: 20231130
  35. BENADRYL [Concomitant]
     Active Substance: DIPHENHYDRAMINE HYDROCHLORIDE
     Dates: start: 20231109
  36. DEXAMETHASONE SODIUM PHOSPHATE [Concomitant]
     Active Substance: DEXAMETHASONE PHOSPHATE\DEXAMETHASONE SODIUM PHOSPHATE
     Indication: Product used for unknown indication
  37. SINGULAIR [Concomitant]
     Active Substance: MONTELUKAST SODIUM
     Indication: Product used for unknown indication
     Dosage: 20MG
     Dates: start: 20231116
  38. SINGULAIR [Concomitant]
     Active Substance: MONTELUKAST SODIUM
     Dosage: 20MG
     Dates: start: 20231122
  39. SINGULAIR [Concomitant]
     Active Substance: MONTELUKAST SODIUM
     Dosage: 20MG
     Dates: start: 20231130
  40. SINGULAIR [Concomitant]
     Active Substance: MONTELUKAST SODIUM
     Dates: start: 20231109
  41. SINGULAIR [Concomitant]
     Active Substance: MONTELUKAST SODIUM
     Dates: start: 20231109
  42. SINGULAIR [Concomitant]
     Active Substance: MONTELUKAST SODIUM
     Dates: start: 20231109
  43. SINGULAIR [Concomitant]
     Active Substance: MONTELUKAST SODIUM
     Dates: start: 20231109

REACTIONS (2)
  - Dizziness [Recovered/Resolved]
  - Balance disorder [Recovering/Resolving]

NARRATIVE: CASE EVENT DATE: 20231116
